FAERS Safety Report 13531119 (Version 1)
Quarter: 2017Q2

REPORT INFORMATION
  Report Type: Spontaneous
  Country: BR (occurrence: BR)
  Receive Date: 20170510
  Receipt Date: 20170510
  Transmission Date: 20170830
  Serious: Yes (Hospitalization)
  Sender: FDA-Public Use
  Company Number: BR-B.I. PHARMACEUTICALS,INC./RIDGEFIELD-2017-BI-022389

PATIENT
  Age: 74 Year
  Sex: Female
  Weight: 68 kg

DRUGS (7)
  1. LEVOFLOXACINO [Concomitant]
     Active Substance: LEVOFLOXACIN
     Indication: KNEE OPERATION
     Route: 065
  2. ASPIRINA PREVENT [Concomitant]
     Active Substance: ASPIRIN
     Indication: PRODUCT USED FOR UNKNOWN INDICATION
     Route: 048
     Dates: start: 201704
  3. RIFALDIN [Concomitant]
     Active Substance: RIFAMPIN
     Indication: KNEE OPERATION
     Route: 065
  4. SINVASTATINA [Concomitant]
     Active Substance: SIMVASTATIN
     Indication: BLOOD CHOLESTEROL INCREASED
     Route: 048
  5. TRAYENTA [Suspect]
     Active Substance: LINAGLIPTIN
     Indication: BLOOD GLUCOSE INCREASED
     Route: 048
     Dates: start: 2016
  6. SINVASTATINA [Concomitant]
     Active Substance: SIMVASTATIN
     Indication: BLOOD TRIGLYCERIDES INCREASED
  7. BROMAZEPAN [Concomitant]
     Active Substance: BROMAZEPAM
     Indication: INSOMNIA
     Route: 065

REACTIONS (14)
  - Head discomfort [Recovered/Resolved]
  - Decreased appetite [Recovered/Resolved]
  - Pruritus generalised [Recovered/Resolved]
  - Erysipelas [Recovered/Resolved]
  - Blood glucose increased [Unknown]
  - Haemorrhage [Unknown]
  - Abdominal pain [Recovered/Resolved]
  - Crying [Recovered/Resolved]
  - Pneumonia [Recovered/Resolved]
  - Knee operation [Unknown]
  - Anaemia [Recovered/Resolved]
  - Chikungunya virus infection [Recovered/Resolved]
  - Infection [Not Recovered/Not Resolved]
  - Tremor [Recovered/Resolved]

NARRATIVE: CASE EVENT DATE: 2016
